FAERS Safety Report 24588853 (Version 2)
Quarter: 2024Q4

REPORT INFORMATION
  Report Type: Spontaneous
  Country: US (occurrence: None)
  Receive Date: 20241107
  Receipt Date: 20241122
  Transmission Date: 20250114
  Serious: Yes (Life-Threatening, Hospitalization, Other)
  Sender: NORDIC PHARMA
  Company Number: US-MLMSERVICE-20180309-1098905-1

PATIENT
  Age: 35 Year
  Sex: Male

DRUGS (5)
  1. METHOTREXATE [Suspect]
     Active Substance: METHOTREXATE
     Indication: Granulomatosis with polyangiitis
  2. MYCOPHENOLIC ACID [Concomitant]
     Active Substance: MYCOPHENOLIC ACID
     Indication: Granulomatosis with polyangiitis
  3. ETANERCEPT [Concomitant]
     Active Substance: ETANERCEPT
     Indication: Granulomatosis with polyangiitis
  4. RITUXIMAB [Concomitant]
     Active Substance: RITUXIMAB
     Indication: Granulomatosis with polyangiitis
  5. CYCLOPHOSPHAMIDE [Concomitant]
     Active Substance: CYCLOPHOSPHAMIDE
     Indication: Granulomatosis with polyangiitis

REACTIONS (2)
  - Nasal cavity cancer [Recovered/Resolved]
  - Product use in unapproved indication [Unknown]
